FAERS Safety Report 21472893 (Version 1)
Quarter: 2022Q4

REPORT INFORMATION
  Report Type: Spontaneous
  Country: GB (occurrence: GB)
  Receive Date: 20221018
  Receipt Date: 20221018
  Transmission Date: 20230112
  Serious: Yes (Other)
  Sender: FDA-Public Use
  Company Number: None

PATIENT
  Age: 6 Year
  Sex: Female
  Weight: 16 kg

DRUGS (3)
  1. MONTELUKAST [Suspect]
     Active Substance: MONTELUKAST SODIUM
     Indication: Product used for unknown indication
     Dosage: 4 MILLIGRAM, QD (AT NIGHT)
     Route: 048
     Dates: start: 20210315, end: 20220826
  2. BECLOMETHASONE DIPROPIONATE [Concomitant]
     Active Substance: BECLOMETHASONE DIPROPIONATE
     Dosage: 3 DOSAGE FORM, BID (PUFFS)
     Route: 065
     Dates: start: 20220315
  3. VENTOLIN [Concomitant]
     Active Substance: ALBUTEROL SULFATE
     Dosage: 2 DOSAGE FORM, PRN
     Route: 055
     Dates: start: 20220530

REACTIONS (5)
  - Behaviour disorder [Recovering/Resolving]
  - Emotional disorder [Recovering/Resolving]
  - Dyskinesia [Recovering/Resolving]
  - Depressed mood [Recovering/Resolving]
  - Tic [Recovering/Resolving]

NARRATIVE: CASE EVENT DATE: 20220701
